FAERS Safety Report 20377518 (Version 1)
Quarter: 2022Q1

REPORT INFORMATION
  Report Type: Spontaneous
  Country: US (occurrence: US)
  Receive Date: 20220126
  Receipt Date: 20220126
  Transmission Date: 20220423
  Serious: No
  Sender: FDA-Public Use
  Company Number: US-ALLERGAN-2132875US

PATIENT
  Sex: Female

DRUGS (1)
  1. UBRELVY [Suspect]
     Active Substance: UBROGEPANT
     Indication: Hemiplegic migraine
     Dosage: 50 MG
     Dates: start: 202103

REACTIONS (2)
  - Off label use [Unknown]
  - Therapy interrupted [Unknown]
